FAERS Safety Report 5960831-3 (Version None)
Quarter: 2008Q4

REPORT INFORMATION
  Report Type: 
  Country: None (occurrence: None)
  Receive Date: 20081121
  Receipt Date: 20081118
  Transmission Date: 20090506
  Serious: Yes (Disabling)
  Sender: FDA-Public Use
  Company Number: JP-SP-2008-02706

PATIENT
  Age: 72 Year
  Sex: Male

DRUGS (12)
  1. IMMUCYST [Suspect]
     Indication: BLADDER CANCER RECURRENT
     Route: 043
     Dates: start: 20080515, end: 20080619
  2. IMMUCYST [Suspect]
     Route: 043
     Dates: start: 20080515, end: 20080619
  3. IMMUCYST [Suspect]
     Route: 043
     Dates: start: 20080515, end: 20080619
  4. IMMUCYST [Suspect]
     Route: 043
     Dates: start: 20080515, end: 20080619
  5. ASPIRIN [Concomitant]
  6. PERINDOPRIL ERBUMINE [Concomitant]
  7. RANITIDINE HYDROCHLORIDE [Concomitant]
  8. AMLODIPINE BESYLATE [Concomitant]
  9. CARBOCISTEINE [Concomitant]
  10. EPERISONE HYDROCHLORIDE [Concomitant]
  11. ZALTOPROFEN [Concomitant]
  12. MECOBALAMIN [Concomitant]

REACTIONS (7)
  - CONTRACTED BLADDER [None]
  - DYSURIA [None]
  - HAEMATURIA [None]
  - HYDRONEPHROSIS [None]
  - INCORRECT DOSE ADMINISTERED [None]
  - POLLAKIURIA [None]
  - PYURIA [None]
